FAERS Safety Report 17014927 (Version 1)
Quarter: 2019Q4

REPORT INFORMATION
  Report Type: Spontaneous
  Country: RS (occurrence: RS)
  Receive Date: 20191111
  Receipt Date: 20191111
  Transmission Date: 20200122
  Serious: Yes (Other)
  Sender: FDA-Public Use
  Company Number: RS-TEVA-2019-RS-1134270

PATIENT
  Age: 85 Year
  Sex: Male

DRUGS (10)
  1. ANDOL [Suspect]
     Active Substance: ASPIRIN
     Dosage: 100 MILLIGRAM DAILY;
     Route: 048
  2. TENSEC [Concomitant]
     Dosage: 5 MILLIGRAM DAILY;
  3. LIMERAL [Concomitant]
     Dosage: 1 MILLIGRAM DAILY;
  4. PANRAZOL [Concomitant]
     Active Substance: PANTOPRAZOLE SODIUM
     Dosage: 20 MILLIGRAM DAILY;
  5. VIVACE [Concomitant]
     Dosage: 5 MILLIGRAM DAILY;
  6. PANRAZOL [Concomitant]
     Active Substance: PANTOPRAZOLE SODIUM
     Dosage: 40 MILLIGRAM DAILY;
  7. METFODIAB [Concomitant]
     Dosage: 2000 MILLIGRAM DAILY;
  8. ATACOR [Concomitant]
     Dosage: 10 MILLIGRAM DAILY;
  9. ANDOL [Suspect]
     Active Substance: ASPIRIN
     Dosage: 75 MILLIGRAM DAILY;
     Route: 048
  10. ANTIAGREX [Suspect]
     Active Substance: CLOPIDOGREL BISULFATE
     Dosage: 75 MILLIGRAM DAILY;
     Route: 048

REACTIONS (3)
  - Dyspepsia [Recovering/Resolving]
  - Haemorrhagic diathesis [Recovering/Resolving]
  - Contusion [Recovered/Resolved]
